FAERS Safety Report 10381875 (Version 2)
Quarter: 2014Q3

REPORT INFORMATION
  Report Type: Report from Study
  Country: AR (occurrence: AR)
  Receive Date: 20140813
  Receipt Date: 20140924
  Transmission Date: 20150326
  Serious: Yes (Death, Hospitalization)
  Sender: FDA-Public Use
  Company Number: AR-VIIV HEALTHCARE LIMITED-B0892345A

PATIENT
  Age: 73 Year
  Sex: Male
  Weight: 68 kg

DRUGS (6)
  1. ATAZANAVIR [Concomitant]
     Active Substance: ATAZANAVIR
     Indication: IMMUNOSUPPRESSION
     Dosage: 300MG PER DAY
     Route: 048
     Dates: start: 20070725, end: 20140423
  2. MARAVIROC [Suspect]
     Active Substance: MARAVIROC
     Indication: HIV INFECTION
     Dosage: 150MG TWICE PER DAY
     Dates: start: 20120917, end: 20140423
  3. IRON SULPHATE [Concomitant]
     Indication: ANAEMIA
     Route: 048
     Dates: start: 20101008
  4. RITONAVIR [Concomitant]
     Active Substance: RITONAVIR
     Indication: IMMUNOSUPPRESSION
     Dosage: 100MG PER DAY
     Route: 048
     Dates: start: 20070725, end: 20140423
  5. ENALAPRIL [Concomitant]
     Active Substance: ENALAPRIL
     Indication: HYPERTENSION
     Route: 048
     Dates: start: 20070822
  6. OMEPRAZOLE. [Concomitant]
     Active Substance: OMEPRAZOLE
     Indication: GASTRITIS
     Route: 048
     Dates: start: 20121016

REACTIONS (1)
  - Colon cancer [Fatal]

NARRATIVE: CASE EVENT DATE: 20130406
